FAERS Safety Report 8793887 (Version 3)
Quarter: 2012Q4

REPORT INFORMATION
  Report Type: 
  Country: JP (occurrence: JP)
  Receive Date: 20120918
  Receipt Date: 20121106
  Transmission Date: 20130627
  Serious: No
  Sender: FDA-Public Use
  Company Number: JP-009507513-1203USA04086

PATIENT
  Age: 6 None
  Sex: Female
  Weight: 56 kg

DRUGS (9)
  1. DECADRON [Suspect]
     Indication: MULTIPLE MYELOMA
     Dosage: 10 mg, bid
     Route: 048
     Dates: start: 20111128, end: 20111201
  2. UNSPECIFIED INGREDIENT [Suspect]
     Indication: SCAN BONE MARROW
     Dosage: 555 MBq, Once
     Route: 042
     Dates: start: 20111206, end: 20111206
  3. OZEX (TOSUFLOXACIN TOSYLATE) [Concomitant]
     Dosage: 600 mg, qd
     Route: 048
     Dates: start: 20111128, end: 20111209
  4. BAKTAR [Concomitant]
     Dosage: 1 DF, qd
     Route: 048
     Dates: start: 20111128, end: 20111209
  5. ITRIZOLE [Concomitant]
     Dosage: 200 mg, qd
     Route: 048
     Dates: start: 20111128, end: 20111209
  6. PARIET [Concomitant]
     Dosage: 10 mg, qd
     Route: 048
     Dates: start: 20111128, end: 20111209
  7. VALTREX [Concomitant]
     Dosage: 500 mg, qd
     Route: 048
     Dates: start: 20111128, end: 20111209
  8. BLOPRESS [Concomitant]
     Dosage: 8 mg, qd
     Route: 048
     Dates: end: 20111209
  9. ALLOPURINOL [Concomitant]
     Dosage: 200 mg, qd
     Route: 048
     Dates: end: 20111209

REACTIONS (1)
  - Acute febrile neutrophilic dermatosis [Recovered/Resolved]
